FAERS Safety Report 8984955 (Version 2)
Quarter: 2013Q1

REPORT INFORMATION
  Report Type: Spontaneous
  Country: US (occurrence: US)
  Receive Date: 20121225
  Receipt Date: 20130201
  Transmission Date: 20140127
  Serious: Yes (Hospitalization)
  Sender: FDA-Public Use
  Company Number: US-AMGEN-USASP2012081513

PATIENT
  Age: 66 Year
  Sex: Male
  Weight: 75 kg

DRUGS (2)
  1. ARANESP [Suspect]
     Indication: LYMPHOMA
     Dosage: 300 MUG, Q2WK
  2. OTHER CHEMOTHERAPEUTICS [Concomitant]
     Indication: LYMPHOMA

REACTIONS (1)
  - Aplasia pure red cell [Unknown]
